FAERS Safety Report 14524370 (Version 2)
Quarter: 2018Q1

REPORT INFORMATION
  Report Type: Spontaneous
  Country: US (occurrence: US)
  Receive Date: 20180213
  Receipt Date: 20180214
  Transmission Date: 20180509
  Serious: No
  Sender: FDA-Public Use
  Company Number: US-PFIZER INC-2018062458

PATIENT
  Age: 57 Year
  Sex: Male
  Weight: 104.31 kg

DRUGS (1)
  1. GABAPENTIN. [Suspect]
     Active Substance: GABAPENTIN
     Indication: NEURALGIA
     Dosage: 600 MG, 3X/DAY (ONE TABLET BY MOUTH THREE TIMES A DAY)
     Route: 048
     Dates: start: 201712

REACTIONS (4)
  - Drug ineffective for unapproved indication [Unknown]
  - Pain [Unknown]
  - Peripheral swelling [Unknown]
  - Condition aggravated [Unknown]

NARRATIVE: CASE EVENT DATE: 20180207
